FAERS Safety Report 4542567-9 (Version None)
Quarter: 2004Q4

REPORT INFORMATION
  Report Type: 
  Country: None (occurrence: None)
  Receive Date: 20041230
  Receipt Date: 20041223
  Transmission Date: 20050328
  Serious: Yes (Other)
  Sender: FDA-Public Use
  Company Number: DK-MERCK-0412DNK00021

PATIENT
  Age: 55 Year
  Sex: Male

DRUGS (5)
  1. VIOXX [Suspect]
     Indication: PAIN
     Route: 048
     Dates: start: 20000501, end: 20031217
  2. METOPROLOL TARTRATE [Concomitant]
     Route: 048
     Dates: start: 20031030
  3. BENDROFLUMETHIAZIDE AND POTASSIUM CHLORIDE [Concomitant]
     Route: 048
     Dates: start: 20031030
  4. AMLODIPINE BESYLATE [Concomitant]
     Route: 048
     Dates: start: 20031030
  5. PREDNISOLONE [Concomitant]
     Route: 048
     Dates: start: 20010409

REACTIONS (2)
  - CEREBRAL INFARCTION [None]
  - PARAESTHESIA [None]
